FAERS Safety Report 10228333 (Version 1)
Quarter: 2014Q2

REPORT INFORMATION
  Report Type: Spontaneous
  Country: US (occurrence: None)
  Receive Date: 20140505
  Receipt Date: 20140505
  Transmission Date: 20141212
  Serious: No
  Sender: FDA-Public Use
  Company Number: US-014577

PATIENT
  Age: 48 Year
  Sex: Male
  Weight: 120.2 kg

DRUGS (8)
  1. PICO-SALAX (NOT SPECIFIED) [Suspect]
     Indication: BOWEL PREPARATION
     Dosage: 1ST PACKET AT 6 PM ON 29JAN2013; 2ND PACKET AT 6 AM ON 30JAN2013
     Dates: start: 20130129, end: 20130130
  2. HYDROCHLOROTHIAZIDE [Concomitant]
  3. LISINOPRIL [Concomitant]
  4. METOPROLOL [Concomitant]
  5. AMLODIPINE [Concomitant]
  6. METFORMIN [Concomitant]
  7. LIALDA [Concomitant]
  8. VICTOZA [Concomitant]

REACTIONS (1)
  - Drug ineffective [None]
